FAERS Safety Report 6870148-0 (Version None)
Quarter: 2010Q3

REPORT INFORMATION
  Report Type: 
  Country: None (occurrence: None)
  Receive Date: 20100721
  Receipt Date: 20100707
  Transmission Date: 20110219
  Serious: Yes (Hospitalization, Other)
  Sender: FDA-Public Use
  Company Number: 006611

PATIENT
  Sex: Male

DRUGS (17)
  1. CERTOLIZUMAB PEGOL (CERTOLIZUMAB PEGOL) [Suspect]
     Indication: RHEUMATOID ARTHRITIS
     Dosage: (200 MG 1X/2 WEEKS SUBCUTANEOUS)
     Route: 058
     Dates: start: 20091117, end: 20100208
  2. CERTOLIZUMAB PEGOL (CERTOLIZUMAB PEGOL) [Suspect]
     Indication: RHEUMATOID ARTHRITIS
     Dosage: (200 MG 1X/2 WEEKS SUBCUTANEOUS)
     Route: 058
     Dates: start: 20100311, end: 20100506
  3. METHOTREXATE [Concomitant]
  4. SALAZOSULFAPYRIDINE [Concomitant]
  5. PREDNISOLONE [Concomitant]
  6. INFLIXIMAB [Concomitant]
  7. RANITIDINE HYDROCHLORIDE [Concomitant]
  8. SULFAMETHOXAZOLE AND TRIMETHOPRIM [Concomitant]
  9. ALFACALCIDOL [Concomitant]
  10. CELECOXIB [Concomitant]
  11. ISONIAZID [Concomitant]
  12. PYRIDOXAL PHOSPHATE [Concomitant]
  13. CLARITHROMYCIN [Concomitant]
  14. CEFEPIME [Concomitant]
  15. METHYLPREDNISOLONE SODIUM SUCCINATE [Concomitant]
  16. KETOPROFEN [Concomitant]
  17. PITAVASTATIN CALCIUM [Concomitant]

REACTIONS (6)
  - CULTURE POSITIVE [None]
  - HAEMORRHAGE [None]
  - PEPTOSTREPTOCOCCUS INFECTION [None]
  - POSTOPERATIVE WOUND INFECTION [None]
  - TENDON RUPTURE [None]
  - VENTRICULAR EXTRASYSTOLES [None]
